FAERS Safety Report 11144784 (Version 1)
Quarter: 2015Q2

REPORT INFORMATION
  Report Type: Spontaneous
  Country: US (occurrence: US)
  Receive Date: 20150526
  Receipt Date: 20150526
  Transmission Date: 20150821
  Serious: No
  Sender: FDA-Public Use
  Company Number: US-PFIZER INC-2015176600

PATIENT

DRUGS (1)
  1. CHANTIX [Suspect]
     Active Substance: VARENICLINE TARTRATE
     Dosage: 0.5 MG TABLET OR 1MG TABLET, 2X/DAY
     Route: 048
     Dates: start: 2015, end: 2015

REACTIONS (1)
  - Cough [Unknown]

NARRATIVE: CASE EVENT DATE: 2015
